FAERS Safety Report 7761660-0 (Version None)
Quarter: 2011Q3

REPORT INFORMATION
  Report Type: 
  Country: None (occurrence: None)
  Receive Date: 20110920
  Receipt Date: 20110906
  Transmission Date: 20111222
  Serious: No
  Sender: FDA-Public Use
  Company Number: ZW-BRISTOL-MYERS SQUIBB COMPANY-16047508

PATIENT
  Age: 33 Year
  Sex: Female
  Weight: 70 kg

DRUGS (2)
  1. COMBIVIR [Suspect]
     Indication: HIV INFECTION
     Dosage: 1DF : 150/300MG,LAST DOSE ON 03JUN09
     Route: 048
     Dates: start: 20090603
  2. EFAVIRENZ [Suspect]
     Indication: HIV INFECTION
     Dosage: HS-AT BEDTIME
     Route: 048
     Dates: start: 20090603

REACTIONS (1)
  - PREGNANCY [None]
